FAERS Safety Report 7265509-4 (Version None)
Quarter: 2011Q1

REPORT INFORMATION
  Report Type: 
  Country: None (occurrence: None)
  Receive Date: 20110131
  Receipt Date: 20110126
  Transmission Date: 20110831
  Serious: Yes (Hospitalization)
  Sender: FDA-Public Use
  Company Number: AT-ROCHE-755579

PATIENT
  Age: 53 Year
  Sex: Female

DRUGS (2)
  1. VINORELBINE [Concomitant]
  2. HERCEPTIN [Suspect]
     Route: 065
     Dates: end: 20101227

REACTIONS (2)
  - POSTERIOR REVERSIBLE ENCEPHALOPATHY SYNDROME [None]
  - PYREXIA [None]
